FAERS Safety Report 5335055-3 (Version None)
Quarter: 2007Q2

REPORT INFORMATION
  Report Type: 
  Country: None (occurrence: None)
  Receive Date: 20070525
  Receipt Date: 20070523
  Transmission Date: 20071010
  Serious: Yes (Death)
  Sender: FDA-Public Use
  Company Number: A0652978A

PATIENT
  Age: 52 Year
  Sex: Female

DRUGS (1)
  1. TYKERB [Suspect]
     Indication: DRUG USE FOR UNKNOWN INDICATION
     Dates: start: 20070401

REACTIONS (5)
  - DEATH [None]
  - DYSGEUSIA [None]
  - FATIGUE [None]
  - NAUSEA [None]
  - PAIN IN EXTREMITY [None]
